FAERS Safety Report 8130808-0 (Version None)
Quarter: 2012Q1

REPORT INFORMATION
  Report Type: 
  Country: None (occurrence: None)
  Receive Date: 20120213
  Receipt Date: 20120201
  Transmission Date: 20120608
  Serious: No
  Sender: FDA-Public Use
  Company Number: US-BIOGENIDEC-2011BI044147

PATIENT
  Sex: Female

DRUGS (4)
  1. REQUIP [Concomitant]
  2. BACLOFEN [Concomitant]
  3. AVONEX [Suspect]
     Indication: PRODUCT USED FOR UNKNOWN INDICATION
     Route: 030
  4. AMYPRA [Concomitant]
     Indication: GAIT DISTURBANCE
     Dates: start: 20101108

REACTIONS (3)
  - INCREASED TENDENCY TO BRUISE [None]
  - LIVER DISORDER [None]
  - LIVER FUNCTION TEST ABNORMAL [None]
